FAERS Safety Report 16910363 (Version 1)
Quarter: 2019Q4

REPORT INFORMATION
  Report Type: Report from Study
  Country: IT (occurrence: IT)
  Receive Date: 20191011
  Receipt Date: 20191011
  Transmission Date: 20200122
  Serious: Yes (Hospitalization)
  Sender: FDA-Public Use
  Company Number: IT-REGENERON PHARMACEUTICALS, INC.-2019-42200

PATIENT

DRUGS (14)
  1. CEMIPLIMAB [Suspect]
     Active Substance: CEMIPLIMAB
     Indication: LUNG SQUAMOUS CELL CARCINOMA STAGE IV
     Dosage: 350 MG, Q3W
     Route: 042
     Dates: start: 20190121
  2. MOVICOL [Concomitant]
     Active Substance: POLYETHYLENE GLYCOL 3350\POTASSIUM CHLORIDE\SODIUM BICARBONATE\SODIUM CHLORIDE
     Indication: CONSTIPATION
     Dosage: 13.8 G, BID
     Route: 048
     Dates: start: 201901
  3. ALLOPURINOL. [Concomitant]
     Active Substance: ALLOPURINOL
     Indication: GOUT
     Dosage: 150 MG, QD
     Route: 048
     Dates: start: 20190328
  4. IPILIMUMAB [Suspect]
     Active Substance: IPILIMUMAB
     Indication: LUNG SQUAMOUS CELL CARCINOMA STAGE IV
     Dosage: 50 MG, Q6W FOR UP TO 4 DOSES
     Route: 042
     Dates: start: 20190121
  5. GEMCITABINE. [Suspect]
     Active Substance: GEMCITABINE
     Indication: LUNG SQUAMOUS CELL CARCINOMA STAGE IV
     Dosage: 1250 MG/M2, Q3W
     Route: 042
     Dates: start: 20190121
  6. TARGIN [Concomitant]
     Active Substance: NALOXONE HYDROCHLORIDE\OXYCODONE HYDROCHLORIDE
     Indication: NON-CARDIAC CHEST PAIN
     Dosage: 20/10 MG, BID
     Route: 048
     Dates: start: 20190328
  7. SIMVASTATINA [Concomitant]
     Active Substance: SIMVASTATIN
     Indication: DYSLIPIDAEMIA
     Dosage: 20 MG, QD
     Route: 048
  8. TACHIPIRINA [Concomitant]
     Active Substance: ACETAMINOPHEN
     Indication: NON-CARDIAC CHEST PAIN
     Dosage: 1000 MG, TID
     Route: 048
  9. EUTIROX [Concomitant]
     Active Substance: LEVOTHYROXINE SODIUM
     Indication: BLOOD THYROID STIMULATING HORMONE INCREASED
     Dosage: 24 ?G, QD
     Route: 048
     Dates: start: 20190521
  10. MICARDIS PLUS [Concomitant]
     Active Substance: HYDROCHLOROTHIAZIDE\TELMISARTAN
     Indication: HYPERTENSION
     Dosage: 80/12.5 MG, QD
     Route: 048
  11. NACL [Concomitant]
     Active Substance: SODIUM CHLORIDE
     Indication: DIARRHOEA
     Dosage: 500 ML, QID
     Route: 042
     Dates: start: 20190520, end: 20190524
  12. CISPLATIN. [Suspect]
     Active Substance: CISPLATIN
     Indication: LUNG SQUAMOUS CELL CARCINOMA STAGE IV
     Dosage: 100 MG/M2, Q3W
     Route: 042
     Dates: start: 20190121
  13. INDOMETACIN [Concomitant]
     Active Substance: INDOMETHACIN
     Indication: GOUT
     Dosage: 25 MG, BID
     Route: 048
  14. MEPREDNISONE [Concomitant]
     Active Substance: MEPREDNISONE
     Indication: PRODUCT USED FOR UNKNOWN INDICATION
     Dosage: 40 MG, QD
     Route: 048
     Dates: start: 20190520, end: 20190530

REACTIONS (1)
  - Dermatitis allergic [Recovered/Resolved]

NARRATIVE: CASE EVENT DATE: 20190610
